FAERS Safety Report 10137690 (Version 1)
Quarter: 2014Q2

REPORT INFORMATION
  Report Type: Spontaneous
  Country: US (occurrence: None)
  Receive Date: 20140428
  Receipt Date: 20140428
  Transmission Date: 20141212
  Serious: Yes (Other)
  Sender: FDA-Public Use
  Company Number: None

PATIENT
  Age: 50 Year
  Sex: Female
  Weight: 61.24 kg

DRUGS (1)
  1. MIRVASO [Suspect]
     Indication: ROSACEA
     Dosage: SAMPLE?ONCE DAILY?APPLIED TO A SURFACE, USUALLY THE SKIN
     Dates: start: 20140423, end: 20140423

REACTIONS (9)
  - Influenza [None]
  - Rash [None]
  - Burning sensation [None]
  - Pruritus [None]
  - Skin burning sensation [None]
  - Headache [None]
  - Feeling abnormal [None]
  - Dizziness [None]
  - Feeling abnormal [None]
